FAERS Safety Report 19770784 (Version 1)
Quarter: 2021Q3

REPORT INFORMATION
  Report Type: Spontaneous
  Country: US (occurrence: US)
  Receive Date: 20210901
  Receipt Date: 20210901
  Transmission Date: 20211014
  Serious: Yes (Life-Threatening)
  Sender: FDA-Public Use
  Company Number: None

PATIENT
  Age: 63 Year
  Sex: Male
  Weight: 89.55 kg

DRUGS (1)
  1. REGEN?COV [Suspect]
     Active Substance: CASIRIVIMAB\IMDEVIMAB
     Dosage: ?          OTHER FREQUENCY:ONE DOSE;?
     Route: 040
     Dates: start: 20210829, end: 20210829

REACTIONS (9)
  - Chills [None]
  - Confusional state [None]
  - Dizziness [None]
  - Bronchospasm [None]
  - Throat irritation [None]
  - Heart rate increased [None]
  - Tremor [None]
  - Infusion related reaction [None]
  - Hyperhidrosis [None]

NARRATIVE: CASE EVENT DATE: 20210829
